FAERS Safety Report 11610919 (Version 3)
Quarter: 2018Q1

REPORT INFORMATION
  Report Type: Spontaneous
  Country: US (occurrence: US)
  Receive Date: 20151008
  Receipt Date: 20180314
  Transmission Date: 20180508
  Serious: Yes (Hospitalization)
  Sender: FDA-Public Use
  Company Number: US-PFIZER INC-2015318745

PATIENT
  Age: 61 Year
  Sex: Female
  Weight: 109 kg

DRUGS (3)
  1. ADVIL [Suspect]
     Active Substance: IBUPROFEN
  2. ADVIL PM [Suspect]
     Active Substance: DIPHENHYDRAMINE CITRATE\IBUPROFEN
     Indication: SWELLING
     Dosage: 1 DF, DAILY
     Route: 048
     Dates: start: 20150919, end: 20150921
  3. ADVIL PM [Suspect]
     Active Substance: DIPHENHYDRAMINE CITRATE\IBUPROFEN
     Dosage: 2 TIMES EACH

REACTIONS (9)
  - Product name confusion [Recovered/Resolved]
  - Back pain [Recovered/Resolved]
  - Product label issue [Recovered/Resolved]
  - Pollakiuria [Recovered/Resolved]
  - Somnolence [Recovered/Resolved]
  - Mouth haemorrhage [Recovered/Resolved]
  - Muscle spasms [Recovered/Resolved]
  - Diarrhoea [Recovered/Resolved]
  - Wrong drug administered [Recovered/Resolved]

NARRATIVE: CASE EVENT DATE: 201509
